FAERS Safety Report 4559040-4 (Version None)
Quarter: 2005Q1

REPORT INFORMATION
  Report Type: 
  Country: None (occurrence: None)
  Receive Date: 20050124
  Receipt Date: 20050113
  Transmission Date: 20050727
  Serious: Yes (Hospitalization)
  Sender: FDA-Public Use
  Company Number: US-JNJFOC-20050103513

PATIENT
  Sex: Male

DRUGS (8)
  1. INFLIXIMAB [Suspect]
     Route: 042
  2. INFLIXIMAB [Suspect]
     Indication: RHEUMATOID ARTHRITIS
     Route: 042
  3. AMBIEN [Concomitant]
  4. DILTIAZEM [Concomitant]
  5. BETAPACE [Concomitant]
  6. TERAZOSIN [Concomitant]
  7. WARFARIN SODIUM [Concomitant]
  8. ACTIQ [Concomitant]

REACTIONS (1)
  - ATRIAL FIBRILLATION [None]
